FAERS Safety Report 26056592 (Version 1)
Quarter: 2025Q4

REPORT INFORMATION
  Report Type: Spontaneous
  Country: US (occurrence: US)
  Receive Date: 20251118
  Receipt Date: 20251118
  Transmission Date: 20260118
  Serious: No
  Sender: ALVOGEN
  Company Number: US-ALVOGEN-2025098296

PATIENT
  Sex: Female

DRUGS (1)
  1. TERIPARATIDE [Suspect]
     Active Substance: TERIPARATIDE
     Indication: Osteoporosis
     Dosage: EXPIRATION: 30-NOV-2026?RX# 28815913?STRENGTH: 250MCG/ML
     Route: 058
     Dates: start: 202506

REACTIONS (6)
  - Device malfunction [Unknown]
  - Device operational issue [Unknown]
  - Device breakage [Unknown]
  - Device defective [Unknown]
  - Product dose omission issue [Unknown]
  - Product use issue [Unknown]

NARRATIVE: CASE EVENT DATE: 20250628
